FAERS Safety Report 20537244 (Version 1)
Quarter: 2022Q1

REPORT INFORMATION
  Report Type: Spontaneous
  Country: US (occurrence: None)
  Receive Date: 20220301
  Receipt Date: 20220301
  Transmission Date: 20220423
  Serious: No
  Sender: FDA-Public Use
  Company Number: None

PATIENT
  Age: 47 Year
  Sex: Female
  Weight: 76.5 kg

DRUGS (6)
  1. CAPECITABINE [Suspect]
     Active Substance: CAPECITABINE
     Indication: Breast cancer
     Dosage: OTHER FREQUENCY : AM,1.5PMX14/21DAYS;?
     Route: 048
     Dates: start: 20210818, end: 20220126
  2. ALPRAZOLAM [Concomitant]
     Active Substance: ALPRAZOLAM
  3. CLONAZEPAM [Concomitant]
     Active Substance: CLONAZEPAM
  4. Prochlorperazine 10mg [Concomitant]
  5. Venlafaxine 25mg [Concomitant]
  6. Probiotic/Acidophilus [Concomitant]

REACTIONS (1)
  - Erythema [None]

NARRATIVE: CASE EVENT DATE: 20220228
